FAERS Safety Report 14300332 (Version 1)
Quarter: 2017Q4

REPORT INFORMATION
  Report Type: Spontaneous
  Country: FR (occurrence: FR)
  Receive Date: 20171219
  Receipt Date: 20171219
  Transmission Date: 20180321
  Serious: Yes (Other)
  Sender: FDA-Public Use
  Company Number: FR-MERCK KGAA-2037372

PATIENT
  Age: 54 Year
  Sex: Female

DRUGS (1)
  1. NOVOTHYROX [Suspect]
     Active Substance: LEVOTHYROXINE SODIUM
     Indication: HYPOTHYROIDISM

REACTIONS (15)
  - Fatigue [None]
  - Paraesthesia [None]
  - Libido decreased [None]
  - Palpitations [None]
  - Dysgeusia [None]
  - Disturbance in attention [None]
  - Decreased interest [None]
  - Loss of personal independence in daily activities [None]
  - Social avoidant behaviour [None]
  - Tinnitus [None]
  - Muscle spasms [None]
  - Balance disorder [None]
  - Eye disorder [None]
  - Anxiety [None]
  - Migraine [None]

NARRATIVE: CASE EVENT DATE: 2017
